FAERS Safety Report 17071176 (Version 1)
Quarter: 2019Q4

REPORT INFORMATION
  Report Type: Spontaneous
  Country: US (occurrence: US)
  Receive Date: 20191125
  Receipt Date: 20191125
  Transmission Date: 20200122
  Serious: Yes (Other)
  Sender: FDA-Public Use
  Company Number: US-MYLANLABS-2019M1110549

PATIENT
  Sex: Female
  Weight: 52 kg

DRUGS (3)
  1. BUSPIRONE HYDROCHLORIDE TABLETS, USP [Suspect]
     Active Substance: BUSPIRONE HYDROCHLORIDE
     Indication: ANXIETY
     Dosage: UNK UNK, QD
     Route: 048
     Dates: start: 20180313
  2. BUSPIRONE HYDROCHLORIDE TABLETS, USP [Suspect]
     Active Substance: BUSPIRONE HYDROCHLORIDE
     Dosage: 45 MILLIGRAM
     Dates: start: 20180301, end: 201809
  3. CRESTOR [Concomitant]
     Active Substance: ROSUVASTATIN CALCIUM
     Dosage: UNK

REACTIONS (3)
  - Alanine aminotransferase increased [Not Recovered/Not Resolved]
  - Aspartate aminotransferase increased [Not Recovered/Not Resolved]
  - Liver injury [Not Recovered/Not Resolved]

NARRATIVE: CASE EVENT DATE: 201809
